FAERS Safety Report 7365841-X (Version None)
Quarter: 2011Q1

REPORT INFORMATION
  Report Type: 
  Country: None (occurrence: None)
  Receive Date: 20110322
  Receipt Date: 20110311
  Transmission Date: 20110831
  Serious: Yes (Hospitalization, Other)
  Sender: FDA-Public Use
  Company Number: AR-AMGEN-ARGSP2011009326

PATIENT
  Age: 53 Year
  Sex: Female
  Weight: 90 kg

DRUGS (9)
  1. ENBREL [Suspect]
     Indication: RHEUMATOID ARTHRITIS
     Dosage: UNK
     Dates: start: 20110201
  2. CLONAZEPAM [Concomitant]
     Dosage: UNK
     Route: 048
  3. LEVOTHYROXINE SODIUM [Concomitant]
     Dosage: UNK
     Route: 048
  4. ENBREL [Suspect]
     Dosage: 25 MG, 2X/WEEK
     Route: 058
     Dates: start: 20080101, end: 20101101
  5. ENALAPRIL [Concomitant]
     Dosage: UNK
     Route: 048
  6. ATENOLOL [Concomitant]
     Dosage: UNK
     Route: 048
  7. SERTRALINE HYDROCHLORIDE [Concomitant]
     Dosage: UNK
     Route: 048
  8. ENBREL [Suspect]
     Dosage: UNK
     Dates: start: 20090301, end: 20110101
  9. OMEPRAZOLE [Concomitant]
     Dosage: UNK
     Route: 048

REACTIONS (3)
  - JOINT FLUID DRAINAGE [None]
  - CELLULITIS [None]
  - OEDEMA PERIPHERAL [None]
